FAERS Safety Report 7415860-X (Version None)
Quarter: 2011Q2

REPORT INFORMATION
  Report Type: 
  Country: None (occurrence: None)
  Receive Date: 20110414
  Receipt Date: 20110401
  Transmission Date: 20111010
  Serious: No
  Sender: FDA-Public Use
  Company Number: US-B.I. PHARMACEUTICALS,INC./RIDGEFIELD-2011-BP-02563BP

PATIENT
  Sex: Male

DRUGS (3)
  1. PRADAXA [Suspect]
     Indication: ATRIAL FIBRILLATION
     Dosage: 300 MG
     Route: 048
     Dates: start: 20101225
  2. LANOXIN [Concomitant]
     Indication: ATRIAL FIBRILLATION
     Dosage: 0.25 MG
  3. LOPRESSOR [Concomitant]
     Indication: ATRIAL FIBRILLATION
     Dosage: 200 MG

REACTIONS (3)
  - FOREIGN BODY [None]
  - NASAL CONGESTION [None]
  - DYSPHONIA [None]
